FAERS Safety Report 6151484-2 (Version None)
Quarter: 2009Q2

REPORT INFORMATION
  Report Type: 
  Country: None (occurrence: None)
  Receive Date: 20090408
  Receipt Date: 20081222
  Transmission Date: 20091009
  Serious: Yes (Other)
  Sender: FDA-Public Use
  Company Number: WAES 0812USA04645

PATIENT
  Age: 74 Year
  Sex: Male

DRUGS (11)
  1. ZOCOR [Suspect]
     Indication: ACUTE CORONARY SYNDROME
     Dosage: PO
     Route: 048
     Dates: start: 20081107
  2. TAB PLACEBO (UNSPECIFIED) [Suspect]
     Indication: ACUTE CORONARY SYNDROME
     Dosage: PO
     Route: 048
     Dates: start: 20071106
  3. ALPRAZOLAM [Concomitant]
  4. ASPIRIN [Concomitant]
  5. CLONAZEPAM [Concomitant]
  6. CLOPIDOGREL BISULFATE [Concomitant]
  7. ENALAPRIL MALEATE [Concomitant]
  8. FLUOXETINE [Concomitant]
  9. METOPROLOL TARTRATE [Concomitant]
  10. OMEPRAZOLE [Concomitant]
  11. TRAZODONE HC1 [Concomitant]

REACTIONS (1)
  - GASTRIC CANCER [None]
